FAERS Safety Report 7197881-8 (Version None)
Quarter: 2010Q4

REPORT INFORMATION
  Report Type: 
  Country: None (occurrence: None)
  Receive Date: 20101227
  Receipt Date: 20101219
  Transmission Date: 20110411
  Serious: Yes (Death, Hospitalization)
  Sender: FDA-Public Use
  Company Number: ES-ROCHE-738935

PATIENT
  Sex: Female
  Weight: 46.8 kg

DRUGS (7)
  1. BEVACIZUMAB [Suspect]
     Indication: GLIOBLASTOMA MULTIFORME
     Dosage: LAST DOSE PRIOR TO EVENT:15 OCT 2010
     Route: 042
     Dates: start: 20100917, end: 20101026
  2. TEMOZOLOMIDE [Suspect]
     Indication: GLIOBLASTOMA MULTIFORME
     Dosage: LAST DOSE PRIOR TO SAE: 22 OCT 2010; FREQ: DAILY FOR A WEEK, EVERY 15 DAYS
     Route: 048
     Dates: start: 20100917, end: 20101026
  3. HEPARIN SODIUM [Suspect]
     Route: 065
  4. DEXAMETHASONE [Concomitant]
     Dates: start: 20100907
  5. FENITOINA [Concomitant]
     Dates: start: 20100615
  6. OMEPRAZOLE [Concomitant]
     Dates: start: 20100101, end: 20101128
  7. CEFTRIAXONE [Concomitant]
     Dates: start: 20101026, end: 20101103

REACTIONS (3)
  - CEREBRAL HAEMORRHAGE [None]
  - HAEMORRHAGE URINARY TRACT [None]
  - HAEMORRHAGIC STROKE [None]
